FAERS Safety Report 4330630-7 (Version None)
Quarter: 2004Q2

REPORT INFORMATION
  Report Type: 
  Country: None (occurrence: None)
  Receive Date: 20040402
  Receipt Date: 20040323
  Transmission Date: 20050107
  Serious: Yes (Other)
  Sender: FDA-Public Use
  Company Number: GB-ROCHE-362836

PATIENT
  Age: 68 Year
  Sex: Male

DRUGS (11)
  1. CAPECITABINE [Suspect]
     Route: 048
     Dates: start: 20031215, end: 20040105
  2. EPIRUBICIN [Suspect]
     Dosage: MAXIMUM OF 8 CYCLES
     Route: 040
     Dates: start: 20031215, end: 20040105
  3. OXALIPLATIN [Suspect]
     Dosage: MAXIMUM 8 CYCLES
     Route: 042
     Dates: start: 20031215, end: 20040105
  4. ATENOLOL [Concomitant]
  5. LANSOPRAZOLE [Concomitant]
  6. ACETAMINOPHEN [Concomitant]
     Route: 048
  7. SENNA [Concomitant]
     Route: 048
  8. ANTIEMETICS [Concomitant]
  9. MOUTHWASH [Concomitant]
  10. DIARRHEA MEDICATION NOS [Concomitant]
  11. TREATMENT NOT KNOWN [Concomitant]
     Dosage: VERY INFREQUENT

REACTIONS (2)
  - HYPERSENSITIVITY [None]
  - PERIORBITAL OEDEMA [None]
